FAERS Safety Report 9315963 (Version 7)
Quarter: 2015Q1

REPORT INFORMATION
  Report Type: Report from Study
  Country: US (occurrence: US)
  Receive Date: 20130530
  Receipt Date: 20150223
  Transmission Date: 20150721
  Serious: Yes (Death, Hospitalization)
  Sender: FDA-Public Use
  Company Number: US-BIOGENIDEC-2013BI044788

PATIENT
  Age: 53 Year
  Sex: Female

DRUGS (2)
  1. AVONEX [Suspect]
     Active Substance: INTERFERON BETA-1A
     Indication: MULTIPLE SCLEROSIS
     Route: 030
     Dates: start: 20120713, end: 20121023
  2. AVONEX [Suspect]
     Active Substance: INTERFERON BETA-1A
     Indication: MULTIPLE SCLEROSIS
     Route: 030
     Dates: start: 20121024, end: 2013

REACTIONS (4)
  - Multiple sclerosis [Recovered/Resolved]
  - Exploratory operation [Recovered/Resolved]
  - Pancreatic carcinoma stage II [Fatal]
  - Cystitis escherichia [Not Recovered/Not Resolved]

NARRATIVE: CASE EVENT DATE: 201302
